FAERS Safety Report 21387780 (Version 2)
Quarter: 2022Q3

REPORT INFORMATION
  Report Type: Spontaneous
  Country: US (occurrence: US)
  Receive Date: 20220928
  Receipt Date: 20220930
  Transmission Date: 20221027
  Serious: No
  Sender: FDA-Public Use
  Company Number: US-NEUROCRINE BIOSCIENCES INC.-2022NBI06741

PATIENT

DRUGS (1)
  1. ONGENTYS [Suspect]
     Active Substance: OPICAPONE
     Indication: Product used for unknown indication
     Dosage: 50 MILLIGRAM,UNK
     Route: 065
     Dates: start: 20220819

REACTIONS (3)
  - Feeling abnormal [Unknown]
  - Balance disorder [Recovering/Resolving]
  - Hormone level abnormal [Unknown]
